FAERS Safety Report 6683468-X (Version None)
Quarter: 2010Q2

REPORT INFORMATION
  Report Type: 
  Country: None (occurrence: None)
  Receive Date: 20100415
  Receipt Date: 20100407
  Transmission Date: 20101027
  Serious: Yes (Other)
  Sender: FDA-Public Use
  Company Number: US-AMGEN-QUU397703

PATIENT
  Sex: Female
  Weight: 172 kg

DRUGS (4)
  1. NPLATE [Suspect]
     Indication: IDIOPATHIC THROMBOCYTOPENIC PURPURA
     Route: 058
     Dates: start: 20090304, end: 20090415
  2. IMMU-G [Concomitant]
     Dates: start: 20060202
  3. CORTICOSTEROIDS [Concomitant]
  4. RITUXIMAB [Concomitant]
     Dates: start: 20080212

REACTIONS (2)
  - DRUG INEFFECTIVE [None]
  - THERAPEUTIC RESPONSE DECREASED [None]
